FAERS Safety Report 6972613-4 (Version None)
Quarter: 2010Q3

REPORT INFORMATION
  Report Type: 
  Country: None (occurrence: None)
  Receive Date: 20100909
  Receipt Date: 20100901
  Transmission Date: 20110219
  Serious: Yes (Hospitalization)
  Sender: FDA-Public Use
  Company Number: ES-PFIZER INC-2010109888

PATIENT
  Age: 78 Year
  Sex: Male

DRUGS (3)
  1. CARDYL [Suspect]
     Indication: HYPERCHOLESTEROLAEMIA
     Dosage: 20 MG, 1X/DAY
     Dates: start: 20100101, end: 20100406
  2. OMEPRAZOLE [Concomitant]
     Dosage: 20 MG, 1X/DAY
     Dates: start: 20090101
  3. ASPIRIN [Concomitant]
     Dosage: 100 MG, 1X/DAY
     Dates: start: 20100101

REACTIONS (1)
  - DRUG ERUPTION [None]
